FAERS Safety Report 9116386 (Version 2)
Quarter: 2013Q1

REPORT INFORMATION
  Report Type: Report from Study
  Country: DE (occurrence: DE)
  Receive Date: 20130225
  Receipt Date: 20130318
  Transmission Date: 20140127
  Serious: Yes (Hospitalization)
  Sender: FDA-Public Use
  Company Number: DE-ACTELION-A-US2013-79857

PATIENT
  Age: 73 Year
  Sex: Female

DRUGS (3)
  1. VENTAVIS [Suspect]
     Indication: PULMONARY ARTERIAL HYPERTENSION
     Dosage: 2.5 ?G, X6/DAY
     Route: 055
     Dates: start: 20120125
  2. REVATIO [Concomitant]
     Dosage: 20 MG, UNK
  3. ILOMEDIN [Concomitant]
     Dosage: UNK
     Route: 055

REACTIONS (2)
  - Recurrent cancer [Unknown]
  - Breast cancer [Recovering/Resolving]
